FAERS Safety Report 9315556 (Version 1)
Quarter: 2013Q2

REPORT INFORMATION
  Report Type: Spontaneous
  Country: US (occurrence: US)
  Receive Date: 20130529
  Receipt Date: 20130529
  Transmission Date: 20140414
  Serious: Yes (Hospitalization)
  Sender: FDA-Public Use
  Company Number: US-TEVA-407231USA

PATIENT
  Age: 73 Year
  Sex: Female

DRUGS (2)
  1. AZILECT [Suspect]
     Indication: PARKINSON^S DISEASE
     Route: 048
     Dates: start: 201303, end: 201305
  2. CEFTRIAXONE [Interacting]

REACTIONS (5)
  - Urinary tract infection [Unknown]
  - Speech disorder [Recovering/Resolving]
  - Staring [Recovering/Resolving]
  - Drug interaction [Unknown]
  - Drug ineffective [Unknown]
